FAERS Safety Report 17508419 (Version 2)
Quarter: 2020Q3

REPORT INFORMATION
  Report Type: Spontaneous
  Country: IT (occurrence: IT)
  Receive Date: 20200306
  Receipt Date: 20200924
  Transmission Date: 20201102
  Serious: Yes (Other)
  Sender: FDA-Public Use
  Company Number: IT-LUPIN PHARMACEUTICALS INC.-2020-01144

PATIENT
  Age: 26 Year
  Sex: Male

DRUGS (8)
  1. OLANZAPINE. [Interacting]
     Active Substance: OLANZAPINE
     Indication: MENTAL DISORDER
     Dosage: MAXIMUM DOSAGE OF 20 MILLIGRAM PER DAY
     Route: 065
  2. CARBAMAZEPINE. [Interacting]
     Active Substance: CARBAMAZEPINE
     Indication: MENTAL DISORDER
     Dosage: 800 MILLIGRAM PER DAY
     Route: 065
  3. LURASIDONE [Suspect]
     Active Substance: LURASIDONE
     Indication: MENTAL DISORDER
     Dosage: TITRATED TO 120 MILLIGRAM PER DAY
     Route: 065
  4. OLANZAPINE. [Interacting]
     Active Substance: OLANZAPINE
     Dosage: 20 MILLIGRAM, QD (REINTRODUCE)
     Route: 065
  5. HALOPERIDOL. [Concomitant]
     Active Substance: HALOPERIDOL
     Indication: MENTAL DISORDER
     Dosage: UPTO 6 MILLIGRAM PER DAY
     Route: 065
  6. LURASIDONE [Interacting]
     Active Substance: LURASIDONE
     Dosage: 150 MILLIGRAM PER DAY (DOSE INCREASED)
     Route: 065
  7. HALOPERIDOL. [Concomitant]
     Active Substance: HALOPERIDOL
     Dosage: 2 MILLIGRAM PER DAY (DOSE REDUCED)
     Route: 065
  8. HALOPERIDOL. [Concomitant]
     Active Substance: HALOPERIDOL
     Dosage: 9 MILLIGRAM PER DAY
     Route: 065

REACTIONS (6)
  - Drug ineffective [Unknown]
  - Disease recurrence [Unknown]
  - Splenic lesion [Recovered/Resolved]
  - Drug interaction [Unknown]
  - Psychotic disorder [Unknown]
  - Withdrawal syndrome [Unknown]
